FAERS Safety Report 13763523 (Version 3)
Quarter: 2018Q1

REPORT INFORMATION
  Report Type: Spontaneous
  Country: AU (occurrence: AU)
  Receive Date: 20170718
  Receipt Date: 20180329
  Transmission Date: 20180508
  Serious: Yes (Other)
  Sender: FDA-Public Use
  Company Number: AU-009507513-1707AUS003263

PATIENT
  Age: 29 Year
  Sex: Female

DRUGS (1)
  1. IMPLANON [Suspect]
     Active Substance: ETONOGESTREL
     Dosage: 1 IMPLANT, SUPERIOR TO THE SULCUS BICIPITAL MEDIALIS
     Route: 059
     Dates: start: 20170616, end: 20170629

REACTIONS (7)
  - Contusion [Unknown]
  - Complication associated with device [Recovered/Resolved]
  - Localised oedema [Unknown]
  - Device deployment issue [Recovered/Resolved]
  - Pain [Unknown]
  - Movement disorder [Unknown]
  - Device dislocation [Recovered/Resolved]

NARRATIVE: CASE EVENT DATE: 201706
